FAERS Safety Report 9177507 (Version 2)
Quarter: 2013Q4

REPORT INFORMATION
  Report Type: Report from Study
  Country: FR (occurrence: FR)
  Receive Date: 20130321
  Receipt Date: 20131216
  Transmission Date: 20140711
  Serious: Yes (Hospitalization)
  Sender: FDA-Public Use
  Company Number: PHHY2013FR020568

PATIENT
  Age: 65 Year
  Sex: Male
  Weight: 125 kg

DRUGS (22)
  1. MYCOPHENOLIC ACID [Suspect]
     Indication: IMMUNOSUPPRESSION
     Dosage: 360 MG, BID
     Route: 048
     Dates: start: 20100318
  2. MYCOPHENOLIC ACID [Suspect]
     Dosage: 360 MG, BID
     Route: 048
     Dates: start: 20101004
  3. NEORAL [Suspect]
     Indication: IMMUNOSUPPRESSION
     Dosage: 100 MG, BID
     Route: 048
     Dates: start: 20100325
  4. NEORAL [Suspect]
     Dosage: 100 MG, UNK
     Route: 048
     Dates: start: 20101004
  5. NEORAL [Suspect]
     Dosage: 150 MG, BID
  6. CORTANCYL [Concomitant]
     Dosage: 5 MG, QD
  7. TAHOR [Concomitant]
     Dosage: 20 MG, QD
  8. BISOPROLOL [Concomitant]
     Dosage: 7.5 MG, QD
  9. PARIET [Concomitant]
     Dosage: 10 MG, UNK
  10. ASPEGIC [Concomitant]
     Dosage: 250 MG, QD
  11. TARDYFERON B(9) [Concomitant]
     Dosage: 1 DF, QD
  12. NOVORAPID [Concomitant]
     Dosage: 10 IU, TID
  13. NOVORAPID [Concomitant]
     Dosage: 6 IU, TID
  14. MAGNE B6 [Concomitant]
     Dosage: 2 DF, BID
  15. APROVEL [Concomitant]
     Dosage: 150 MG, QD
  16. APROVEL [Concomitant]
     Dosage: 300 MG, QD
  17. DIFFU K [Concomitant]
     Dosage: 1200 MG, BID
  18. LYRICA [Concomitant]
     Dosage: 150 MG, BID
  19. LANTUS [Concomitant]
     Dosage: 40 IU, QD
  20. LANTUS [Concomitant]
     Dosage: 34 IU, EVENING
  21. EUPRESSYL [Concomitant]
     Dosage: 50 MG, TID
  22. AMLOR [Concomitant]
     Dosage: 10 MG, QD

REACTIONS (14)
  - Gastroenteritis [Recovering/Resolving]
  - Cardiac failure [Recovering/Resolving]
  - Oedema [Recovering/Resolving]
  - Weight increased [Recovering/Resolving]
  - Oedema peripheral [Recovering/Resolving]
  - Dyspnoea exertional [Recovering/Resolving]
  - Renal failure chronic [Recovering/Resolving]
  - Pneumonia [Recovering/Resolving]
  - Chills [Recovering/Resolving]
  - Cough [Recovering/Resolving]
  - Pyrexia [Recovering/Resolving]
  - Crepitations [Recovering/Resolving]
  - Lung disorder [Recovered/Resolved]
  - Sputum discoloured [Recovering/Resolving]
